FAERS Safety Report 6369147-7 (Version None)
Quarter: 2009Q3

REPORT INFORMATION
  Report Type: 
  Country: None (occurrence: None)
  Receive Date: 20090922
  Receipt Date: 20090916
  Transmission Date: 20100115
  Serious: Yes (Other)
  Sender: FDA-Public Use
  Company Number: PHHY2009JP35275

PATIENT
  Age: 52 Year
  Sex: Male

DRUGS (4)
  1. SANDIMMUNE [Suspect]
     Indication: RENAL TRANSPLANT
     Dosage: 150 MG DAILY
     Route: 048
     Dates: start: 19881001, end: 20000301
  2. PREDNISONE [Concomitant]
     Indication: RENAL TRANSPLANT
  3. AZATHIOPRINE [Concomitant]
     Indication: RENAL TRANSPLANT
     Dosage: 40 MG, UNK
     Route: 048
     Dates: start: 19881001
  4. MEDROL [Concomitant]
     Indication: RENAL TRANSPLANT
     Dosage: 4 MG, UNK
     Route: 048
     Dates: start: 19881001

REACTIONS (7)
  - GAIT DISTURBANCE [None]
  - HUMAN T-CELL LYMPHOTROPIC VIRUS TYPE I INFECTION [None]
  - HYPOKINESIA [None]
  - NEUROGENIC BLADDER [None]
  - SENSORY DISTURBANCE [None]
  - SPASTIC PARAPLEGIA [None]
  - TROPICAL SPASTIC PARESIS [None]
